FAERS Safety Report 4324885-2 (Version None)
Quarter: 2004Q1

REPORT INFORMATION
  Report Type: 
  Country: None (occurrence: None)
  Receive Date: 20040326
  Receipt Date: 20040309
  Transmission Date: 20041129
  Serious: Yes (Hospitalization, Disabling, Other)
  Sender: FDA-Public Use
  Company Number: PHBS2004JP03427

PATIENT
  Age: 78 Year
  Sex: Female
  Weight: 49 kg

DRUGS (13)
  1. LOCHOL [Suspect]
     Indication: HYPERCHOLESTEROLAEMIA
     Dosage: 30 MG/DAY
     Route: 048
     Dates: start: 20040108, end: 20040306
  2. GLYCORAN [Suspect]
     Indication: DIABETES MELLITUS
     Dosage: 250 MG, BID
     Route: 048
     Dates: start: 20020411, end: 20040306
  3. AMARYL [Suspect]
     Indication: DIABETES MELLITUS
     Dosage: 3 MG, BID
     Route: 048
     Dates: start: 20010607, end: 20040306
  4. NORVASC [Concomitant]
     Indication: HYPERTENSION
     Dosage: 2.5 MG, UNK
     Route: 048
     Dates: start: 19970918, end: 20040306
  5. BENZALIN [Concomitant]
     Indication: INSOMNIA
     Dosage: 5 MG, UNK
     Route: 048
     Dates: start: 19970918, end: 20040306
  6. LANIRAPID [Concomitant]
     Indication: ATRIAL FIBRILLATION
     Dosage: .1 MG, UNK
     Route: 048
     Dates: start: 19970918, end: 20040306
  7. FLUITRAN [Concomitant]
     Indication: OEDEMA DUE TO CARDIAC DISEASE
     Dosage: 2 MG, UNK
     Route: 048
     Dates: start: 19970918, end: 20040306
  8. NU-LOTAN [Concomitant]
     Indication: HYPERTENSION
     Dosage: 50 MG, UNK
     Route: 048
     Dates: start: 20030410, end: 20040306
  9. VOLTAREN [Suspect]
     Indication: OSTEOARTHRITIS
     Dosage: 50 MG/DAY
     Route: 054
     Dates: start: 20031020, end: 20040306
  10. GLUCOBAY [Suspect]
     Indication: DIABETES MELLITUS
     Dosage: 100 MG, TID
     Route: 048
     Dates: start: 19990916, end: 20040306
  11. ETODOLAC [Suspect]
     Indication: OSTEOARTHRITIS
     Dosage: 100 MG, QID
     Route: 048
     Dates: start: 20020827, end: 20040306
  12. ACTONEL [Concomitant]
     Indication: OSTEOPOROSIS
     Dosage: 2.5 MG, UNK
     Route: 048
     Dates: start: 20031020, end: 20040306
  13. ULGUT [Concomitant]
     Indication: GASTRITIS
     Dosage: 200 MG, UNK
     Route: 048
     Dates: start: 20020827, end: 20040306

REACTIONS (14)
  - ALANINE AMINOTRANSFERASE INCREASED [None]
  - ASPARTATE AMINOTRANSFERASE INCREASED [None]
  - BLOOD CREATINE PHOSPHOKINASE INCREASED [None]
  - BLOOD CREATININE INCREASED [None]
  - BLOOD LACTATE DEHYDROGENASE INCREASED [None]
  - CHROMATURIA [None]
  - GAIT DISTURBANCE [None]
  - HEPATIC FUNCTION ABNORMAL [None]
  - HYPERCHOLESTEROLAEMIA [None]
  - HYPOAESTHESIA [None]
  - MALAISE [None]
  - OSTEOARTHROPATHY [None]
  - RENAL FAILURE CHRONIC [None]
  - RHABDOMYOLYSIS [None]
